FAERS Safety Report 6100888-2 (Version None)
Quarter: 2009Q1

REPORT INFORMATION
  Report Type: 
  Country: None (occurrence: None)
  Receive Date: 20090304
  Receipt Date: 20090227
  Transmission Date: 20090719
  Serious: No
  Sender: FDA-Public Use
  Company Number: US-JNJFOC-20090300418

PATIENT
  Sex: Male
  Weight: 99.79 kg

DRUGS (4)
  1. FENTANYL TRANSDERMAL SYSTEM [Suspect]
     Indication: BACK PAIN
     Route: 062
  2. FENTANYL TRANSDERMAL SYSTEM [Suspect]
     Indication: MUSCULOSKELETAL CHEST PAIN
     Route: 062
  3. DECADRON [Concomitant]
     Indication: ARTHRALGIA
     Dosage: 1 TABLET EVERY OTHER DAY
     Route: 048
  4. PERCOCET [Concomitant]
     Indication: ARTHRALGIA
     Route: 048

REACTIONS (3)
  - DIZZINESS [None]
  - NAUSEA [None]
  - TREATMENT NONCOMPLIANCE [None]
